FAERS Safety Report 8381582-4 (Version None)
Quarter: 2012Q2

REPORT INFORMATION
  Report Type: 
  Country: None (occurrence: None)
  Receive Date: 20120523
  Receipt Date: 20120516
  Transmission Date: 20120825
  Serious: Yes (Hospitalization, Other)
  Sender: FDA-Public Use
  Company Number: BR-ABBOTT-12P-020-0936191-00

PATIENT
  Sex: Female
  Weight: 55 kg

DRUGS (6)
  1. HUMIRA [Suspect]
     Indication: CROHN'S DISEASE
     Dosage: INDUCTION DOSE
     Route: 058
     Dates: start: 20110707
  2. AZATHIOPRINE [Concomitant]
     Indication: CROHN'S DISEASE
     Dosage: 2.5 TABLETS IN THE MORNING
     Route: 048
     Dates: start: 20110701
  3. HUMIRA [Suspect]
     Dosage: INDUCTION DOSE
     Route: 058
  4. CIPLOCTOGEL [Concomitant]
     Indication: ANTICOAGULANT THERAPY
     Route: 048
     Dates: start: 20110801
  5. HUMIRA [Suspect]
     Route: 058
  6. HUMIRA [Suspect]
     Route: 058
     Dates: start: 20120414

REACTIONS (12)
  - CEREBROVASCULAR ACCIDENT [None]
  - WEIGHT DECREASED [None]
  - ABDOMINAL PAIN [None]
  - PYREXIA [None]
  - SEPSIS [None]
  - DRUG INEFFECTIVE [None]
  - DIARRHOEA [None]
  - CROHN'S DISEASE [None]
  - INTESTINAL STENOSIS [None]
  - PARAESTHESIA [None]
  - HAEMATOCHEZIA [None]
  - INTESTINAL ULCER [None]
